FAERS Safety Report 8557482-3 (Version None)
Quarter: 2012Q3

REPORT INFORMATION
  Report Type: 
  Country: None (occurrence: None)
  Receive Date: 20120801
  Receipt Date: 20120724
  Transmission Date: 20120928
  Serious: Yes (Hospitalization)
  Sender: FDA-Public Use
  Company Number: GB-ABBOTT-12P-167-0935519-00

PATIENT
  Sex: Female
  Weight: 83 kg

DRUGS (6)
  1. LANSOPRAZOLE [Concomitant]
     Indication: GASTRIC DISORDER
     Route: 048
  2. ETORICOXIB [Concomitant]
     Indication: RHEUMATOID ARTHRITIS
     Route: 048
  3. LANSOPRAZOLE [Concomitant]
     Indication: PROPHYLAXIS AGAINST GASTROINTESTINAL ULCER
  4. METHOTREXATE [Concomitant]
     Indication: RHEUMATOID ARTHRITIS
     Route: 048
     Dates: start: 20070801
  5. HUMIRA [Suspect]
     Indication: RHEUMATOID ARTHRITIS
     Route: 058
     Dates: start: 20071201, end: 20120117
  6. FOLIC ACID [Concomitant]
     Indication: DRUG THERAPY ENHANCEMENT
     Route: 048
     Dates: start: 20070801

REACTIONS (5)
  - PYOMYOSITIS [None]
  - SACROILIITIS [None]
  - SOFT TISSUE INFLAMMATION [None]
  - ARTHRALGIA [None]
  - PYREXIA [None]
